FAERS Safety Report 23802923 (Version 1)
Quarter: 2024Q2

REPORT INFORMATION
  Report Type: Spontaneous
  Country: GB (occurrence: GB)
  Receive Date: 20240501
  Receipt Date: 20240501
  Transmission Date: 20240716
  Serious: Yes (Other)
  Sender: FDA-Public Use
  Company Number: GB-MHRA-MED-202404131827591410-KQRJN

PATIENT
  Age: 72 Year
  Sex: Female
  Weight: 61 kg

DRUGS (2)
  1. EZETIMIBE [Suspect]
     Active Substance: EZETIMIBE
     Indication: Hypercholesterolaemia
     Dosage: 180 MG/10MG ONCE A DAY MORNING; ;
     Route: 065
     Dates: start: 20231101, end: 20240331
  2. BEMPEDOIC ACID [Suspect]
     Active Substance: BEMPEDOIC ACID
     Indication: Hypercholesterolaemia
     Dosage: 180 MG/10MG ONCE A DAY MORNING; ;
     Route: 065
     Dates: start: 20231101, end: 20240331

REACTIONS (7)
  - Haemoglobin decreased [Recovering/Resolving]
  - Anaemia [Recovering/Resolving]
  - Restless legs syndrome [Recovering/Resolving]
  - Dyspnoea [Recovering/Resolving]
  - Cardiac flutter [Recovering/Resolving]
  - Rash [Recovered/Resolved]
  - Pruritus [Recovering/Resolving]

NARRATIVE: CASE EVENT DATE: 20240108
